FAERS Safety Report 9292191 (Version 2)
Quarter: 2013Q2

REPORT INFORMATION
  Report Type: Spontaneous
  Country: US (occurrence: US)
  Receive Date: 20130516
  Receipt Date: 20130521
  Transmission Date: 20140414
  Serious: Yes (Death)
  Sender: FDA-Public Use
  Company Number: US-ROCHE-1224059

PATIENT
  Age: 53 Year
  Sex: Female
  Weight: 131.66 kg

DRUGS (5)
  1. XOLAIR [Suspect]
     Indication: ASTHMA
     Route: 058
     Dates: start: 20050812, end: 20130221
  2. ADVAIR [Concomitant]
     Indication: ASTHMA
     Route: 042
  3. SINGULAIR [Concomitant]
     Indication: ASTHMA
     Route: 048
  4. ALBUTEROL [Concomitant]
     Indication: ASTHMA
     Route: 042
  5. CIPRO [Concomitant]
     Indication: ASTHMA
     Route: 048

REACTIONS (5)
  - Asthma [Fatal]
  - Chronic obstructive pulmonary disease [Fatal]
  - Tracheal stenosis [Fatal]
  - Chronic obstructive pulmonary disease [Fatal]
  - Hypercapnia [Fatal]
